FAERS Safety Report 4354915-3 (Version None)
Quarter: 2004Q2

REPORT INFORMATION
  Report Type: 
  Country: None (occurrence: None)
  Receive Date: 20040505
  Receipt Date: 20040419
  Transmission Date: 20050107
  Serious: Yes (Hospitalization)
  Sender: FDA-Public Use
  Company Number: A-US2004-05869

PATIENT
  Age: 71 Year
  Sex: Female

DRUGS (8)
  1. TRACLEER [Suspect]
     Indication: PULMONARY HYPERTENSION
     Dosage: 32.5 MG, QD, ORAL
     Route: 048
  2. RAPAMUNE [Concomitant]
  3. AMIODARONE HCL [Concomitant]
  4. ATORVASTATIN (ATORVASTATIN) [Concomitant]
  5. HYDROCHLOROTHIAZIDE [Concomitant]
  6. LEVOTHYROXINE SODIUM [Concomitant]
  7. MAG-OX (MAGNESIUM OXIDE) [Concomitant]
  8. ROCALTROL [Concomitant]

REACTIONS (5)
  - GASTROINTESTINAL HAEMORRHAGE [None]
  - GASTROINTESTINAL ULCER [None]
  - HAEMATOCRIT DECREASED [None]
  - HAEMOGLOBIN DECREASED [None]
  - POLYP [None]
